FAERS Safety Report 6921291-9 (Version None)
Quarter: 2010Q3

REPORT INFORMATION
  Report Type: 
  Country: None (occurrence: None)
  Receive Date: 20100812
  Receipt Date: 20100803
  Transmission Date: 20110219
  Serious: Yes (Hospitalization)
  Sender: FDA-Public Use
  Company Number: B0660082A

PATIENT
  Sex: Female
  Weight: 65 kg

DRUGS (4)
  1. TYKERB [Suspect]
     Indication: BREAST CANCER
     Dosage: 1250MG PER DAY
     Route: 048
     Dates: start: 20100521, end: 20100602
  2. TYKERB [Suspect]
     Dosage: 500MG PER DAY
     Route: 048
     Dates: start: 20100602, end: 20100607
  3. XELODA [Suspect]
     Indication: PRODUCT USED FOR UNKNOWN INDICATION
     Dosage: 1200MG PER DAY
     Route: 048
     Dates: start: 20100521, end: 20100602
  4. XELODA [Suspect]
     Dosage: 600MG PER DAY
     Route: 048
     Dates: start: 20100603, end: 20100607

REACTIONS (2)
  - DEHYDRATION [None]
  - DIARRHOEA [None]
